FAERS Safety Report 4500248-1 (Version None)
Quarter: 2004Q3

REPORT INFORMATION
  Report Type: 
  Country: None (occurrence: None)
  Receive Date: 20040927
  Receipt Date: 20040716
  Transmission Date: 20050211
  Serious: No
  Sender: FDA-Public Use
  Company Number: USA040772902

PATIENT
  Age: 6 Year
  Sex: Male
  Weight: 20 kg

DRUGS (3)
  1. STRATTERA [Suspect]
     Indication: ATTENTION DEFICIT/HYPERACTIVITY DISORDER
     Dosage: 40 MG DAY
     Dates: start: 20040702
  2. MOTRIN [Concomitant]
  3. TUMS (CALCIUM CARBONATE) [Concomitant]

REACTIONS (6)
  - AGGRESSION [None]
  - ANGER [None]
  - FATIGUE [None]
  - MOOD SWINGS [None]
  - PRESCRIBED OVERDOSE [None]
  - STOMACH DISCOMFORT [None]
